FAERS Safety Report 15990452 (Version 4)
Quarter: 2020Q4

REPORT INFORMATION
  Report Type: Spontaneous
  Country: US (occurrence: US)
  Receive Date: 20190221
  Receipt Date: 20201110
  Transmission Date: 20210113
  Serious: No
  Sender: FDA-Public Use
  Company Number: US-PFIZER INC-2019078043

PATIENT
  Age: 58 Year
  Sex: Female

DRUGS (1)
  1. PREMARIN [Suspect]
     Active Substance: ESTROGENS, CONJUGATED
     Dosage: 1 G, 2X/WEEK
     Route: 067

REACTIONS (5)
  - Intentional product misuse [Unknown]
  - Vaginal haemorrhage [Unknown]
  - Off label use [Unknown]
  - Vulvovaginal discomfort [Unknown]
  - Product use issue [Unknown]
